FAERS Safety Report 5039129-6 (Version None)
Quarter: 2006Q2

REPORT INFORMATION
  Report Type: 
  Country: None (occurrence: None)
  Receive Date: 20060626
  Receipt Date: 20060610
  Transmission Date: 20061013
  Serious: Yes (Death, Hospitalization)
  Sender: FDA-Public Use
  Company Number: US-2005-020691

PATIENT
  Age: 63 Year
  Sex: Male
  Weight: 84 kg

DRUGS (3)
  1. LEUKINE [Suspect]
     Indication: MALIGNANT MELANOMA
     Dosage: 250 UG/DAY, 14D ON, 14D OFF, SUBCUTANEOUS
     Route: 058
     Dates: start: 20000308, end: 20030507
  2. HYDROCHLOROTHIAZIDE [Concomitant]
  3. MULTIPLE VITAMINS (RETINOL) [Concomitant]

REACTIONS (4)
  - ACUTE MYELOID LEUKAEMIA [None]
  - BLAST CELL PROLIFERATION [None]
  - OCCUPATIONAL EXPOSURE TO TOXIC AGENT [None]
  - PANCYTOPENIA [None]
